FAERS Safety Report 8170630-2 (Version None)
Quarter: 2012Q1

REPORT INFORMATION
  Report Type: 
  Country: None (occurrence: None)
  Receive Date: 20120228
  Receipt Date: 20120216
  Transmission Date: 20120608
  Serious: Yes (Hospitalization)
  Sender: FDA-Public Use
  Company Number: US-ROCHE-1041309

PATIENT
  Sex: Female
  Weight: 80.1 kg

DRUGS (8)
  1. AVASTIN [Suspect]
     Indication: ANAPLASTIC ASTROCYTOMA
     Route: 042
     Dates: start: 20110927
  2. KEPPRA [Concomitant]
     Route: 048
  3. FLUCONAZOLE [Concomitant]
     Route: 048
  4. NEXIUM [Concomitant]
     Route: 048
  5. VORINOSTAT [Suspect]
     Indication: ANAPLASTIC ASTROCYTOMA
     Dosage: 7 DAYS ON, 7 DAYS OFF
     Route: 048
     Dates: start: 20110927
  6. AMITRIPTYLINE HCL [Concomitant]
     Route: 048
  7. BACTRIM [Concomitant]
     Route: 048
  8. EFFEXOR [Concomitant]
     Route: 048

REACTIONS (1)
  - ANAPLASTIC ASTROCYTOMA [None]
